FAERS Safety Report 6678139-X (Version None)
Quarter: 2010Q2

REPORT INFORMATION
  Report Type: 
  Country: None (occurrence: None)
  Receive Date: 20100409
  Receipt Date: 20100409
  Transmission Date: 20101027
  Serious: Yes (Hospitalization)
  Sender: FDA-Public Use
  Company Number: None

PATIENT
  Age: 47 Year
  Sex: Male
  Weight: 63 kg

DRUGS (6)
  1. PIOGLITAZONE [Suspect]
     Dosage: 1 DAILY BY MOUTH
     Route: 048
     Dates: start: 20100311
  2. HYDROCODONE BITARTRATE [Concomitant]
  3. COMPAZINE [Concomitant]
  4. SOMA [Concomitant]
  5. NORCOL [Concomitant]
  6. PIOGLITAZONE OR PLACEBO [Concomitant]

REACTIONS (2)
  - LOBAR PNEUMONIA [None]
  - SEPSIS [None]
